FAERS Safety Report 18145051 (Version 1)
Quarter: 2020Q3

REPORT INFORMATION
  Report Type: Spontaneous
  Country: US (occurrence: US)
  Receive Date: 20200813
  Receipt Date: 20200813
  Transmission Date: 20201103
  Serious: Yes (Other)
  Sender: FDA-Public Use
  Company Number: US-PFIZER INC-2020309880

PATIENT
  Age: 63 Year
  Sex: Male

DRUGS (1)
  1. CARDURA [Suspect]
     Active Substance: DOXAZOSIN MESYLATE
     Indication: HYPERTENSION
     Dosage: UNK

REACTIONS (5)
  - Product use in unapproved indication [Unknown]
  - Blood pressure inadequately controlled [Unknown]
  - Off label use [Unknown]
  - Memory impairment [Unknown]
  - Diabetes mellitus [Unknown]
